FAERS Safety Report 25779495 (Version 2)
Quarter: 2025Q4

REPORT INFORMATION
  Report Type: Spontaneous
  Country: IN (occurrence: IN)
  Receive Date: 20250909
  Receipt Date: 20251007
  Transmission Date: 20260119
  Serious: Yes (Other)
  Sender: IPSEN BIOPHARMACEUTICALS, INC.
  Company Number: IN-SERVIER-S25013037

PATIENT
  Age: 75 Year
  Sex: Female

DRUGS (2)
  1. ONIVYDE [Suspect]
     Active Substance: IRINOTECAN HYDROCHLORIDE
     Indication: Product used for unknown indication
  2. ONIVYDE [Suspect]
     Active Substance: IRINOTECAN HYDROCHLORIDE

REACTIONS (2)
  - Hydronephrosis [Recovered/Resolved]
  - Renal pain [Recovered/Resolved]

NARRATIVE: CASE EVENT DATE: 20250824
